FAERS Safety Report 8133245-8 (Version None)
Quarter: 2012Q1

REPORT INFORMATION
  Report Type: 
  Country: None (occurrence: None)
  Receive Date: 20120213
  Receipt Date: 20120210
  Transmission Date: 20120608
  Serious: Yes (Hospitalization, Disabling, Other)
  Sender: FDA-Public Use
  Company Number: PHHY2012DE007609

PATIENT
  Weight: 95 kg

DRUGS (8)
  1. ANTIDEPRESSANTS [Concomitant]
     Indication: DEPRESSION
  2. ACE INHIBITORS [Concomitant]
  3. THIENOPYRIDINES [Concomitant]
  4. NITRATES [Concomitant]
  5. PLATELET AGGREGATION INHIBITORS [Concomitant]
  6. BETA BLOCKING AGENTS [Concomitant]
  7. RASILEZ [Suspect]
     Indication: HYPERTENSION
     Dosage: 300 MG, QD
     Dates: start: 20081015
  8. TORSEMIDE [Concomitant]
     Dosage: 10 MG, QD

REACTIONS (3)
  - HYPERTENSION [None]
  - HEMIPARESIS [None]
  - CEREBROVASCULAR ACCIDENT [None]
